FAERS Safety Report 20125301 (Version 2)
Quarter: 2022Q1

REPORT INFORMATION
  Report Type: Spontaneous
  Country: FR (occurrence: FR)
  Receive Date: 20211129
  Receipt Date: 20220209
  Transmission Date: 20220423
  Serious: Yes (Other)
  Sender: FDA-Public Use
  Company Number: None

PATIENT
  Age: 48 Year
  Sex: Male

DRUGS (9)
  1. COMIRNATY [Suspect]
     Active Substance: TOZINAMERAN
     Indication: COVID-19 immunisation
     Dosage: DOSE 1, SINGLE
     Route: 030
     Dates: start: 202107, end: 202107
  2. VINCRISTINE SULFATE [Suspect]
     Active Substance: VINCRISTINE SULFATE
     Indication: Pseudolymphoma
     Route: 042
     Dates: start: 2018, end: 2018
  3. DOXORUBICIN HYDROCHLORIDE [Suspect]
     Active Substance: DOXORUBICIN HYDROCHLORIDE
     Indication: Pseudolymphoma
     Dosage: UNK
     Route: 042
     Dates: start: 2018, end: 2018
  4. BLEOMYCIN [Suspect]
     Active Substance: BLEOMYCIN SULFATE
     Indication: Pseudolymphoma
     Dosage: UNK
     Route: 042
     Dates: start: 2018, end: 2018
  5. PROCARBAZINE [Suspect]
     Active Substance: PROCARBAZINE
     Indication: Pseudolymphoma
     Route: 048
     Dates: start: 2018, end: 2018
  6. CYCLOPHOSPHAMIDE [Suspect]
     Active Substance: CYCLOPHOSPHAMIDE
     Indication: Pseudolymphoma
     Dosage: UNK
     Route: 042
     Dates: start: 2018, end: 2018
  7. ETOPOSIDE [Suspect]
     Active Substance: ETOPOSIDE
     Indication: Pseudolymphoma
     Dosage: UNK
     Route: 042
     Dates: start: 2018, end: 2018
  8. DACARBAZINE [Suspect]
     Active Substance: DACARBAZINE
     Indication: Pseudolymphoma
     Dosage: UNK
     Route: 042
     Dates: start: 2018, end: 2018
  9. VINBLASTINE SULFATE [Suspect]
     Active Substance: VINBLASTINE SULFATE
     Indication: Pseudolymphoma
     Dosage: UNK
     Route: 042
     Dates: start: 2018, end: 2018

REACTIONS (3)
  - Spindle cell sarcoma [Not Recovered/Not Resolved]
  - Arthralgia [Recovered/Resolved]
  - Fatigue [Recovered/Resolved]

NARRATIVE: CASE EVENT DATE: 20210701
